FAERS Safety Report 18810955 (Version 1)
Quarter: 2021Q1

REPORT INFORMATION
  Report Type: Report from Study
  Country: US (occurrence: US)
  Receive Date: 20210129
  Receipt Date: 20210129
  Transmission Date: 20210419
  Serious: Yes (Other)
  Sender: FDA-Public Use
  Company Number: US-PFIZER INC-2021062469

PATIENT
  Age: 57 Year
  Sex: Female

DRUGS (1)
  1. IBRANCE [Suspect]
     Active Substance: PALBOCICLIB
     Indication: BREAST CANCER FEMALE
     Dosage: 100 MG, CYCLIC [125MG DAILY, 21 DAYS ON/7 DAYS OFF]
     Route: 048
     Dates: start: 201906

REACTIONS (3)
  - Neuropathy peripheral [Unknown]
  - Neoplasm progression [Unknown]
  - Dry skin [Unknown]
